FAERS Safety Report 5249990-8 (Version None)
Quarter: 2007Q1

REPORT INFORMATION
  Report Type: 
  Country: None (occurrence: None)
  Receive Date: 20070228
  Receipt Date: 20060117
  Transmission Date: 20070707
  Serious: No
  Sender: FDA-Public Use
  Company Number: US-GLAXOSMITHKLINE-A0589672A

PATIENT
  Age: 40 Year
  Sex: Female

DRUGS (6)
  1. LAMICTAL [Suspect]
     Indication: BIPOLAR DISORDER
     Dosage: 100MG PER DAY
     Route: 048
  2. SYNTHROID [Concomitant]
  3. ZOLOFT [Concomitant]
  4. VITAMINS [Concomitant]
  5. GLUCOSAMINE [Concomitant]
     Route: 065
  6. CHONDROITIN [Concomitant]
     Route: 065

REACTIONS (3)
  - ARTHROPOD BITE [None]
  - PRURITUS [None]
  - RASH [None]
